FAERS Safety Report 10239316 (Version 1)
Quarter: 2014Q2

REPORT INFORMATION
  Report Type: Spontaneous
  Country: JP (occurrence: JP)
  Receive Date: 20140616
  Receipt Date: 20140616
  Transmission Date: 20141212
  Serious: Yes (Hospitalization)
  Sender: FDA-Public Use
  Company Number: JP-BRISTOL-MYERS SQUIBB COMPANY-21018411

PATIENT
  Age: 9 Decade
  Sex: Male
  Weight: 60 kg

DRUGS (1)
  1. WARFARIN SODIUM [Suspect]

REACTIONS (1)
  - Anaemia [Unknown]
